FAERS Safety Report 23709047 (Version 2)
Quarter: 2024Q2

REPORT INFORMATION
  Report Type: Spontaneous
  Country: US (occurrence: US)
  Receive Date: 20240404
  Receipt Date: 20240509
  Transmission Date: 20240715
  Serious: Yes (Other)
  Sender: FDA-Public Use
  Company Number: US-PFIZER INC-PV202400043825

PATIENT
  Age: 62 Year
  Sex: Female
  Weight: 85.714 kg

DRUGS (1)
  1. VARENICLINE TARTRATE [Suspect]
     Active Substance: VARENICLINE TARTRATE
     Indication: Smoking cessation therapy
     Dosage: 1 MG AM+PM EACH
     Route: 048

REACTIONS (3)
  - Neck surgery [Unknown]
  - Spinal operation [Unknown]
  - Drug ineffective [Unknown]
